APPROVED DRUG PRODUCT: METHIMAZOLE
Active Ingredient: METHIMAZOLE
Strength: 5MG
Dosage Form/Route: TABLET;ORAL
Application: A040350 | Product #001 | TE Code: AB
Applicant: MYLAN PHARMACEUTICALS INC
Approved: Mar 29, 2000 | RLD: No | RS: No | Type: RX